FAERS Safety Report 12711926 (Version 3)
Quarter: 2019Q3

REPORT INFORMATION
  Report Type: Spontaneous
  Country: JP (occurrence: JP)
  Receive Date: 20160902
  Receipt Date: 20190716
  Transmission Date: 20191004
  Serious: Yes (Other)
  Sender: FDA-Public Use
  Company Number: JP-ASTELLAS-2016US034236

PATIENT
  Age: 29 Year
  Sex: Male

DRUGS (6)
  1. AMPHOTERICIN B, LIPOSOME [Suspect]
     Active Substance: AMPHOTERICIN B
     Indication: MENINGITIS CRYPTOCOCCAL
     Route: 041
     Dates: start: 20160801, end: 20160812
  2. FLUCYTOSINE. [Suspect]
     Active Substance: FLUCYTOSINE
     Indication: MENINGITIS CRYPTOCOCCAL
     Dosage: UNK UNK, UNKNOWN FREQ.
     Route: 065
  3. GLYCEREB [Concomitant]
     Active Substance: FRUCTOSE\GLYCERIN
     Indication: PRODUCT USED FOR UNKNOWN INDICATION
     Dosage: UNK UNK, UNKNOWN FREQ.
     Route: 065
     Dates: start: 20160803, end: 20160909
  4. 5-FLUOROCYTOSINE [Concomitant]
     Active Substance: FLUCYTOSINE
     Indication: PRODUCT USED FOR UNKNOWN INDICATION
     Dosage: UNK UNK, UNKNOWN FREQ.
     Route: 065
     Dates: start: 20160801
  5. ANCOTIL [Concomitant]
     Active Substance: FLUCYTOSINE
     Indication: PRODUCT USED FOR UNKNOWN INDICATION
     Dosage: UNK UNK, UNKNOWN FREQ.
     Route: 065
  6. AMPHOTERICIN B, LIPOSOME [Suspect]
     Active Substance: AMPHOTERICIN B
     Route: 041
     Dates: start: 20160813, end: 20160815

REACTIONS (5)
  - Altered state of consciousness [Recovered/Resolved]
  - Hypomagnesaemia [Recovered/Resolved]
  - Seizure [Recovered/Resolved]
  - Hypokalaemia [Recovered/Resolved]
  - Meningitis cryptococcal [Unknown]

NARRATIVE: CASE EVENT DATE: 20160804
